FAERS Safety Report 23838190 (Version 1)
Quarter: 2024Q2

REPORT INFORMATION
  Report Type: Spontaneous
  Country: CA (occurrence: CA)
  Receive Date: 20240509
  Receipt Date: 20240509
  Transmission Date: 20240716
  Serious: Yes (Life-Threatening, Other)
  Sender: FDA-Public Use
  Company Number: CA-TEVA-VS-3195275

PATIENT
  Age: 45 Year
  Sex: Female

DRUGS (14)
  1. IBUPROFEN [Suspect]
     Active Substance: IBUPROFEN
     Indication: Product used for unknown indication
     Route: 065
  2. IBUPROFEN [Suspect]
     Active Substance: IBUPROFEN
     Indication: Product used for unknown indication
     Route: 065
  3. IBUPROFEN [Suspect]
     Active Substance: IBUPROFEN
     Indication: Product used for unknown indication
     Route: 065
  4. ASPIRIN [Suspect]
     Active Substance: ASPIRIN
     Indication: Product used for unknown indication
     Route: 065
  5. ASPIRIN [Suspect]
     Active Substance: ASPIRIN
     Indication: Product used for unknown indication
     Route: 048
  6. ASPIRIN [Suspect]
     Active Substance: ASPIRIN
     Indication: Product used for unknown indication
     Dosage: TIME INTERVAL: TOTAL
     Route: 065
  7. ASPIRIN [Suspect]
     Active Substance: ASPIRIN
     Indication: Product used for unknown indication
     Dosage: TIME INTERVAL: TOTAL
     Route: 065
  8. ASPIRIN [Suspect]
     Active Substance: ASPIRIN
     Indication: Product used for unknown indication
     Dosage: TIME INTERVAL: TOTAL
     Route: 065
  9. ASPIRIN [Concomitant]
     Active Substance: ASPIRIN
     Indication: Drug provocation test
     Route: 065
  10. NAPROXEN [Concomitant]
     Active Substance: NAPROXEN
     Indication: Product used for unknown indication
     Route: 065
  11. ACETAMINOPHEN [Concomitant]
     Active Substance: ACETAMINOPHEN
     Indication: Product used for unknown indication
     Route: 065
  12. ASPIRIN [Suspect]
     Active Substance: ASPIRIN
     Indication: Drug provocation test
     Dosage: M-ASA 80 MG CROQUABLE
     Route: 065
  13. ASPIRIN [Suspect]
     Active Substance: ASPIRIN
     Indication: Drug provocation test
     Route: 065
  14. ASPIRIN [Suspect]
     Active Substance: ASPIRIN
     Indication: Drug provocation test
     Dosage: DOSAGE FORM: TABLET (CHEWABLE)
     Route: 065

REACTIONS (11)
  - Anaphylactic reaction [Unknown]
  - Off label use [Recovered/Resolved]
  - Dysphonia [Recovered/Resolved]
  - Pharyngeal swelling [Recovered/Resolved]
  - Pruritus [Recovered/Resolved]
  - Rash erythematous [Recovered/Resolved]
  - Throat irritation [Recovered/Resolved]
  - Throat tightness [Recovered/Resolved]
  - Dyspnoea [Unknown]
  - Lip swelling [Unknown]
  - Urticaria [Unknown]
